FAERS Safety Report 5866491-4 (Version None)
Quarter: 2008Q3

REPORT INFORMATION
  Report Type: 
  Country: None (occurrence: None)
  Receive Date: 20080827
  Receipt Date: 20080812
  Transmission Date: 20090109
  Serious: Yes (Death)
  Sender: FDA-Public Use
  Company Number: 2008S1014475

PATIENT
  Sex: 0

DRUGS (15)
  1. ANAGRELIDE HCL [Suspect]
     Dosage: 0.5 MG; 3 TIMES A DAY
     Dates: start: 20050101
  2. PREDNISONE TAB [Suspect]
     Indication: PNEUMONITIS
     Dosage: 50 MG; DAILY; ORAL
     Route: 048
  3. HYDROXYCARBAMIDE (HYDROXYCARBAMIDE) [Concomitant]
  4. DALTEPARIN SODIUM (DALTEPARIN SODIUM) [Concomitant]
  5. CLOPIDOGREL (CLOPIDOGREL) [Concomitant]
  6. ASPIRIN (ACETYLSALICYLIC ACID) [Concomitant]
  7. RAMIPRIL [Concomitant]
  8. METOPROLOL TARTRATE [Concomitant]
  9. SIMVASTATIN [Concomitant]
  10. NITROGLYCERIN [Concomitant]
  11. FUROSEMIDE (FUROSEMIDE) [Concomitant]
  12. CIPROFLOXACIN [Concomitant]
  13. NYSTATIN (NYSTATIN) [Concomitant]
  14. ZOPICLONE (ZOPICLONE) [Concomitant]
  15. ACETAMINOPHEN [Concomitant]

REACTIONS (10)
  - DRUG TOXICITY [None]
  - FUNGAL INFECTION [None]
  - HYPERGLYCAEMIA [None]
  - INTERSTITIAL LUNG DISEASE [None]
  - OEDEMA PERIPHERAL [None]
  - OPPORTUNISTIC INFECTION [None]
  - PNEUMONIA ASPIRATION [None]
  - PNEUMONITIS [None]
  - PULMONARY ALVEOLAR HAEMORRHAGE [None]
  - PULMONARY OEDEMA [None]
